FAERS Safety Report 15979408 (Version 2)
Quarter: 2019Q2

REPORT INFORMATION
  Report Type: Spontaneous
  Country: US (occurrence: US)
  Receive Date: 20190219
  Receipt Date: 20190405
  Transmission Date: 20190711
  Serious: No
  Sender: FDA-Public Use
  Company Number: US-JNJFOC-20190203589

PATIENT
  Sex: Female

DRUGS (2)
  1. STELARA [Suspect]
     Active Substance: USTEKINUMAB
     Indication: PSORIASIS
     Dosage: 2 ND LOADING DOSE
     Route: 058
     Dates: start: 20190108
  2. STELARA [Suspect]
     Active Substance: USTEKINUMAB
     Indication: PSORIASIS
     Dosage: LOADING DOSE
     Route: 058

REACTIONS (3)
  - Swelling of eyelid [Recovering/Resolving]
  - Pain of skin [Unknown]
  - Face oedema [Recovered/Resolved]
